FAERS Safety Report 22343790 (Version 1)
Quarter: 2023Q2

REPORT INFORMATION
  Report Type: Spontaneous
  Country: US (occurrence: US)
  Receive Date: 20230519
  Receipt Date: 20230519
  Transmission Date: 20230722
  Serious: Yes (Hospitalization)
  Sender: FDA-Public Use
  Company Number: US-FERRINGPH-2023FE02332

PATIENT

DRUGS (1)
  1. DESMOPRESSIN [Suspect]
     Active Substance: DESMOPRESSIN
     Indication: Polyuria
     Dosage: UNK
     Route: 048

REACTIONS (4)
  - Inappropriate antidiuretic hormone secretion [Unknown]
  - Atrial fibrillation [Unknown]
  - Hyponatraemia [Recovering/Resolving]
  - Product use in unapproved indication [Recovered/Resolved]
